FAERS Safety Report 15261600 (Version 1)
Quarter: 2018Q3

REPORT INFORMATION
  Report Type: Spontaneous
  Country: US (occurrence: US)
  Receive Date: 20180719
  Receipt Date: 20180719
  Transmission Date: 20181010
  Serious: No
  Sender: FDA-Public Use
  Company Number: None

PATIENT
  Age: 61 Year
  Sex: Female

DRUGS (1)
  1. MAVYRET [Suspect]
     Active Substance: GLECAPREVIR\PIBRENTASVIR
     Dates: start: 20180611, end: 20180719

REACTIONS (4)
  - Gastrooesophageal reflux disease [None]
  - Headache [None]
  - Abdominal pain [None]
  - Acne [None]

NARRATIVE: CASE EVENT DATE: 20180719
